FAERS Safety Report 10761487 (Version 1)
Quarter: 2015Q1

REPORT INFORMATION
  Report Type: Spontaneous
  Country: US (occurrence: None)
  Receive Date: 20150203
  Receipt Date: 20150203
  Transmission Date: 20150721
  Serious: Yes (Hospitalization)
  Sender: FDA-Public Use
  Company Number: None

PATIENT
  Age: 64 Year
  Sex: Male
  Weight: 92 kg

DRUGS (2)
  1. WARFARIN [Suspect]
     Active Substance: WARFARIN
     Indication: ATRIAL THROMBOSIS
     Route: 048
     Dates: start: 20141019
  2. FONDAPARINUX [Suspect]
     Active Substance: FONDAPARINUX
     Indication: ATRIAL THROMBOSIS
     Dates: start: 20141016, end: 20141102

REACTIONS (3)
  - Coagulation time prolonged [None]
  - Haemoglobin decreased [None]
  - Spontaneous haematoma [None]

NARRATIVE: CASE EVENT DATE: 20141102
